FAERS Safety Report 23179908 (Version 1)
Quarter: 2023Q4

REPORT INFORMATION
  Report Type: Other
  Country: US (occurrence: None)
  Receive Date: 20231114
  Receipt Date: 20231114
  Transmission Date: 20240109
  Serious: Yes (Hospitalization)
  Sender: FDA-Public Use
  Company Number: US-ROCHE-3340172

PATIENT
  Age: 76 Year
  Sex: Female

DRUGS (1)
  1. ESBRIET [Suspect]
     Active Substance: PIRFENIDONE
     Indication: Idiopathic pulmonary fibrosis
     Dosage: TAKE 2 TABLETS BY MOUTH TWICE A DAY
     Route: 048

REACTIONS (6)
  - Urinary tract infection [Unknown]
  - Off label use [Unknown]
  - Increased appetite [Unknown]
  - Fatigue [Unknown]
  - Nasal discomfort [Unknown]
  - Nasal congestion [Unknown]
